FAERS Safety Report 12952268 (Version 2)
Quarter: 2016Q4

REPORT INFORMATION
  Report Type: Spontaneous
  Country: US (occurrence: US)
  Receive Date: 20161117
  Receipt Date: 20161123
  Transmission Date: 20170207
  Serious: Yes (Hospitalization, Other)
  Sender: FDA-Public Use
  Company Number: US-SA-2016SA208988

PATIENT
  Age: 88 Year
  Sex: Male

DRUGS (6)
  1. CLOPIDOGREL BISULFATE. [Suspect]
     Active Substance: CLOPIDOGREL BISULFATE
     Indication: ANTIPLATELET THERAPY
     Route: 065
  2. ASPIRIN. [Suspect]
     Active Substance: ASPIRIN
     Indication: ANTICOAGULANT THERAPY
     Route: 065
  3. APIXABAN [Suspect]
     Active Substance: APIXABAN
     Indication: ANTIPLATELET THERAPY
     Route: 065
  4. CLOPIDOGREL BISULFATE. [Suspect]
     Active Substance: CLOPIDOGREL BISULFATE
     Indication: ANTICOAGULANT THERAPY
     Route: 065
  5. ASPIRIN. [Suspect]
     Active Substance: ASPIRIN
     Indication: ANTIPLATELET THERAPY
     Route: 065
  6. APIXABAN [Suspect]
     Active Substance: APIXABAN
     Indication: ANTICOAGULANT THERAPY
     Route: 065

REACTIONS (15)
  - Gallbladder perforation [Recovering/Resolving]
  - Decreased appetite [Recovering/Resolving]
  - Gallbladder enlargement [Recovering/Resolving]
  - Blood alkaline phosphatase increased [Recovering/Resolving]
  - Abdominal tenderness [Recovering/Resolving]
  - White blood cell count increased [Recovering/Resolving]
  - Blood sodium decreased [Recovering/Resolving]
  - Haemobilia [Recovering/Resolving]
  - Hepatic haematoma [Recovering/Resolving]
  - Gastrointestinal wall thickening [Recovering/Resolving]
  - Abdominal pain upper [Recovering/Resolving]
  - Murphy^s sign positive [Recovering/Resolving]
  - Haemorrhagic ascites [Recovering/Resolving]
  - Platelet count increased [Recovering/Resolving]
  - Pleural effusion [Recovering/Resolving]
